FAERS Safety Report 11664060 (Version 1)
Quarter: 2015Q4

REPORT INFORMATION
  Report Type: Spontaneous
  Country: US (occurrence: US)
  Receive Date: 20151027
  Receipt Date: 20151027
  Transmission Date: 20160304
  Serious: No
  Sender: FDA-Public Use
  Company Number: US-ELI_LILLY_AND_COMPANY-US200911007360

PATIENT
  Age: 78 Year
  Sex: Female

DRUGS (1)
  1. FORTEO [Suspect]
     Active Substance: TERIPARATIDE
     Indication: OSTEOPOROSIS
     Dates: start: 200910

REACTIONS (6)
  - Arthralgia [Not Recovered/Not Resolved]
  - Back injury [Not Recovered/Not Resolved]
  - Productive cough [Not Recovered/Not Resolved]
  - Mucosal pigmentation [Not Recovered/Not Resolved]
  - Dysphonia [Not Recovered/Not Resolved]
  - Multiple allergies [Not Recovered/Not Resolved]

NARRATIVE: CASE EVENT DATE: 2009
